FAERS Safety Report 25887821 (Version 1)
Quarter: 2025Q4

REPORT INFORMATION
  Report Type: Spontaneous
  Country: US (occurrence: US)
  Receive Date: 20251007
  Receipt Date: 20251007
  Transmission Date: 20260117
  Serious: Yes (Hospitalization, Other)
  Sender: BOEHRINGER INGELHEIM
  Company Number: US-Komodo Health-a23aa00000AWflTAAT

PATIENT
  Sex: Female

DRUGS (2)
  1. GILOTRIF [Suspect]
     Active Substance: AFATINIB
     Indication: Lung neoplasm malignant
  2. GILOTRIF [Suspect]
     Active Substance: AFATINIB

REACTIONS (5)
  - Mental status changes [Not Recovered/Not Resolved]
  - Diarrhoea [Recovered/Resolved]
  - Fungal skin infection [Not Recovered/Not Resolved]
  - Drug eruption [Not Recovered/Not Resolved]
  - Toxicity to various agents [Unknown]

NARRATIVE: CASE EVENT DATE: 20250901
